FAERS Safety Report 9707348 (Version 1)
Quarter: 2013Q4

REPORT INFORMATION
  Report Type: Spontaneous
  Country: US (occurrence: US)
  Receive Date: 20131125
  Receipt Date: 20131125
  Transmission Date: 20140711
  Serious: No
  Sender: FDA-Public Use
  Company Number: US-GLAXOSMITHKLINE-A1027335A

PATIENT
  Sex: Female

DRUGS (3)
  1. FLOVENT [Suspect]
  2. PAXIL [Suspect]
     Route: 048
  3. CIMETIDINE [Suspect]

REACTIONS (5)
  - Hypersensitivity [Unknown]
  - Laryngitis [Unknown]
  - Amnesia [Unknown]
  - Aphasia [Unknown]
  - Headache [Unknown]
